FAERS Safety Report 14653426 (Version 2)
Quarter: 2025Q4

REPORT INFORMATION
  Report Type: Spontaneous
  Country: US (occurrence: US)
  Receive Date: 20180319
  Receipt Date: 20251022
  Transmission Date: 20260118
  Serious: Yes (Death, Life-Threatening, Hospitalization, Other)
  Sender: ACCORD
  Company Number: US-MLMSERVICE-20180227-1085145-1

PATIENT
  Age: 58 Year
  Sex: Male

DRUGS (12)
  1. MYCOPHENOLATE MOFETIL [Suspect]
     Active Substance: MYCOPHENOLATE MOFETIL
     Indication: Immunosuppressant drug therapy
     Dosage: INTRAOPERATIVELY
  2. TACROLIMUS [Suspect]
     Active Substance: TACROLIMUS
     Indication: Immunosuppressant drug therapy
     Dosage: RECENT TROUGH OF 9.8 NG/ML; GOAL 10-15
  3. METHYLPREDNISOLONE [Suspect]
     Active Substance: METHYLPREDNISOLONE
     Indication: Immunosuppressant drug therapy
  4. PREDNISONE [Suspect]
     Active Substance: PREDNISONE
     Indication: Immunosuppressant drug therapy
  5. ASPIRIN [Concomitant]
     Active Substance: ASPIRIN
  6. CEFAZOLIN [Concomitant]
     Active Substance: CEFAZOLIN
     Route: 042
  7. INSULIN NOS [Concomitant]
     Active Substance: INSULIN NOS
     Indication: Diabetes mellitus
  8. NYSTATIN [Concomitant]
     Active Substance: NYSTATIN
     Indication: Prophylaxis
  9. PRAVASTATIN [Concomitant]
     Active Substance: PRAVASTATIN
  10. SULFAMETHOXAZOLE\TRIMETHOPRIM [Concomitant]
     Active Substance: SULFAMETHOXAZOLE\TRIMETHOPRIM
     Indication: Prophylaxis
  11. VANCOMYCIN [Concomitant]
     Active Substance: VANCOMYCIN
     Route: 042
  12. VALGANCICLOVIR [Concomitant]
     Active Substance: VALGANCICLOVIR
     Indication: Prophylaxis

REACTIONS (16)
  - Electrocardiogram ST segment depression [Unknown]
  - Subarachnoid haemorrhage [Fatal]
  - Cardiogenic shock [Unknown]
  - Respiratory failure [Unknown]
  - Bundle branch block right [Unknown]
  - Intraventricular haemorrhage [Fatal]
  - Brain herniation [Fatal]
  - Disseminated mucormycosis [Fatal]
  - Meningitis fungal [Fatal]
  - Pericarditis fungal [Fatal]
  - Hepatitis [Fatal]
  - Thyroiditis [Fatal]
  - Myocarditis [Fatal]
  - Pleurisy [Fatal]
  - Pneumonia fungal [Fatal]
  - Gastritis fungal [Fatal]
